FAERS Safety Report 6639843-2 (Version None)
Quarter: 2010Q1

REPORT INFORMATION
  Report Type: 
  Country: None (occurrence: None)
  Receive Date: 20100315
  Receipt Date: 20100302
  Transmission Date: 20100710
  Serious: Yes (Other)
  Sender: FDA-Public Use
  Company Number: 1000012378

PATIENT
  Age: 49 Year
  Sex: Female

DRUGS (6)
  1. CITALOPRAM ORAL SOLUTION (CITALOPRAM HYDROBROMIDE) (40 MILLIGRAM/ MILL [Suspect]
     Indication: BIPOLAR DISORDER
     Dosage: 5 GTT (5 GTT, 1 IN 1 D), ORAL
     Route: 048
     Dates: start: 19910101, end: 20100201
  2. FLUPENTIXOL (TABLETS) [Suspect]
     Indication: BIPOLAR DISORDER
     Dosage: 2 MG 91 MG, 2 IN 1 D), ORAL
     Route: 048
     Dates: start: 20100205, end: 20100210
  3. FLUPENTIXOL (TABLETS) [Suspect]
     Indication: BIPOLAR DISORDER
     Dosage: 4 MG (1 MG, 4 IN 1 D), ORAL; 2 MG (1 MG, 2 IN 1 D)
     Route: 048
     Dates: start: 20100211, end: 20100228
  4. FLUPENTIXOL (TABLETS) [Suspect]
     Indication: BIPOLAR DISORDER
     Dosage: 4 MG (1 MG, 4 IN 1 D), ORAL; 2 MG (1 MG, 2 IN 1 D)
     Route: 048
     Dates: start: 20100301
  5. FARGANESSE (TABLETS) [Suspect]
     Indication: INSOMNIA
     Dosage: ORAL
     Route: 048
     Dates: start: 19910101, end: 20100201
  6. HALDOL AND SERENASE (TABLETS) [Suspect]
     Indication: BIPOLAR DISORDER
     Dosage: ORAL
     Route: 048
     Dates: start: 19910101, end: 20100204

REACTIONS (4)
  - CHEST PAIN [None]
  - ELECTROCARDIOGRAM QT PROLONGED [None]
  - FEELING ABNORMAL [None]
  - SYNCOPE [None]
